FAERS Safety Report 6902199-1 (Version None)
Quarter: 2010Q3

REPORT INFORMATION
  Report Type: 
  Country: None (occurrence: None)
  Receive Date: 20100803
  Receipt Date: 20080425
  Transmission Date: 20110219
  Serious: Yes (Other)
  Sender: FDA-Public Use
  Company Number: US-PFIZER INC-2008025638

PATIENT
  Sex: Female
  Weight: 131.1 kg

DRUGS (1)
  1. LYRICA [Suspect]
     Indication: FIBROMYALGIA
     Route: 048
     Dates: start: 20071016

REACTIONS (8)
  - BLOOD CHLORIDE INCREASED [None]
  - BLOOD THYROID STIMULATING HORMONE INCREASED [None]
  - CARBON DIOXIDE DECREASED [None]
  - DIZZINESS [None]
  - MEAN CELL HAEMOGLOBIN DECREASED [None]
  - PLATELET COUNT INCREASED [None]
  - SYNCOPE [None]
  - VITAMIN D DECREASED [None]
